FAERS Safety Report 17108951 (Version 1)
Quarter: 2019Q4

REPORT INFORMATION
  Report Type: Spontaneous
  Country: US (occurrence: US)
  Receive Date: 20191203
  Receipt Date: 20191203
  Transmission Date: 20200122
  Serious: No
  Sender: FDA-Public Use
  Company Number: US-PERRIGO-19US008413

PATIENT
  Age: 42 Year
  Sex: Female

DRUGS (6)
  1. EYECARE [Concomitant]
     Indication: CORNEAL EROSION
     Dosage: UNK
     Route: 047
     Dates: start: 2019
  2. EYE DROPS                          /00256502/ [Concomitant]
     Active Substance: OXYMETAZOLINE
     Indication: CORNEAL EROSION
     Dosage: UNK
     Route: 047
     Dates: start: 2019
  3. BACITRACIN. [Suspect]
     Active Substance: BACITRACIN
     Indication: BLEPHARITIS
  4. EYECARE [Concomitant]
     Indication: BLEPHARITIS
  5. EYE DROPS                          /00256502/ [Concomitant]
     Active Substance: OXYMETAZOLINE
     Indication: BLEPHARITIS
  6. BACITRACIN. [Suspect]
     Active Substance: BACITRACIN
     Indication: CORNEAL EROSION
     Dosage: 1 APPLICATION, QHS
     Route: 047
     Dates: start: 2019, end: 20190703

REACTIONS (2)
  - Eye irritation [Recovered/Resolved]
  - Eye swelling [Recovered/Resolved]

NARRATIVE: CASE EVENT DATE: 2019
